FAERS Safety Report 6219471-3 (Version None)
Quarter: 2009Q2

REPORT INFORMATION
  Report Type: 
  Country: None (occurrence: None)
  Receive Date: 20090609
  Receipt Date: 20090601
  Transmission Date: 20091009
  Serious: Yes (Other)
  Sender: FDA-Public Use
  Company Number: PHEH2009US05586

PATIENT
  Age: 76 Year
  Sex: Female

DRUGS (8)
  1. VIVELLE-DOT [Suspect]
     Dosage: 0.075 MG, UNK
     Route: 062
  2. FUROSEMIDE [Concomitant]
  3. DABIGATRAN [Concomitant]
  4. POTASSIUM CHLORIDE [Concomitant]
  5. FOSAMAX [Concomitant]
  6. VITAMINS [Concomitant]
  7. CALCIUM [Concomitant]
  8. LOVAZA [Concomitant]

REACTIONS (4)
  - ATRIAL FIBRILLATION [None]
  - CEREBROVASCULAR ACCIDENT [None]
  - HEADACHE [None]
  - HOT FLUSH [None]
